FAERS Safety Report 20692744 (Version 3)
Quarter: 2022Q2

REPORT INFORMATION
  Report Type: Report from Study
  Country: AU (occurrence: AU)
  Receive Date: 20220409
  Receipt Date: 20220506
  Transmission Date: 20220721
  Serious: Yes (Hospitalization, Other)
  Sender: FDA-Public Use
  Company Number: AU-TAKEDA-2022TUS012210

PATIENT
  Sex: Male
  Weight: 96 kg

DRUGS (2)
  1. HUMAN IMMUNOGLOBULIN G [Suspect]
     Active Substance: HUMAN IMMUNOGLOBULIN G
     Indication: Hypogammaglobulinaemia
     Dosage: 10 GRAM, 1/WEEK
     Route: 058
     Dates: start: 20220204, end: 20220325
  2. HUMAN IMMUNOGLOBULIN G [Suspect]
     Active Substance: HUMAN IMMUNOGLOBULIN G
     Dosage: 10 GRAM, 1/WEEK
     Route: 058
     Dates: start: 20220204, end: 20220325

REACTIONS (6)
  - Post procedural sepsis [Unknown]
  - Febrile neutropenia [Unknown]
  - Skin cancer [Unknown]
  - Fall [Unknown]
  - Eye disorder [Unknown]
  - Inappropriate schedule of product administration [Unknown]
